FAERS Safety Report 20958108 (Version 3)
Quarter: 2022Q3

REPORT INFORMATION
  Report Type: Spontaneous
  Country: US (occurrence: US)
  Receive Date: 20220614
  Receipt Date: 20220823
  Transmission Date: 20221027
  Serious: No
  Sender: FDA-Public Use
  Company Number: US-BIOGEN-2022BI01131188

PATIENT
  Sex: Female

DRUGS (1)
  1. TYSABRI [Suspect]
     Active Substance: NATALIZUMAB
     Indication: Multiple sclerosis
     Route: 050
     Dates: start: 20200828

REACTIONS (5)
  - Tremor [Unknown]
  - Paraesthesia [Unknown]
  - Spinal pain [Unknown]
  - Fall [Recovered/Resolved]
  - Fatigue [Unknown]
